FAERS Safety Report 17794341 (Version 1)
Quarter: 2020Q2

REPORT INFORMATION
  Report Type: Spontaneous
  Country: DE (occurrence: DE)
  Receive Date: 20200515
  Receipt Date: 20200515
  Transmission Date: 20200714
  Serious: Yes (Other)
  Sender: FDA-Public Use
  Company Number: DE-MYLANLABS-2020M1047874

PATIENT
  Age: 73 Year
  Sex: Male

DRUGS (5)
  1. ATORVASTATIN [Concomitant]
     Active Substance: ATORVASTATIN
     Indication: PRODUCT USED FOR UNKNOWN INDICATION
     Dosage: UNK
  2. TADALAFIL. [Suspect]
     Active Substance: TADALAFIL
     Indication: PRODUCT USED FOR UNKNOWN INDICATION
     Dosage: 15 MG
  3. RAMIPRIL. [Interacting]
     Active Substance: RAMIPRIL
     Indication: ERECTILE DYSFUNCTION
     Dosage: 5 MG
     Dates: start: 2005
  4. VALSARTAN. [Concomitant]
     Active Substance: VALSARTAN
     Indication: PRODUCT USED FOR UNKNOWN INDICATION
     Dosage: UNK
  5. DUODART [Interacting]
     Active Substance: DUTASTERIDE\TAMSULOSIN
     Indication: PRODUCT USED FOR UNKNOWN INDICATION
     Dosage: UNK
     Dates: start: 20200229, end: 20200325

REACTIONS (9)
  - Urethral pain [Recovered/Resolved]
  - Drug ineffective [Unknown]
  - Loss of personal independence in daily activities [Unknown]
  - Dizziness [Unknown]
  - Product use in unapproved indication [Unknown]
  - Nasal congestion [Unknown]
  - Erectile dysfunction [Recovered/Resolved]
  - Vertigo [Unknown]
  - Drug interaction [Unknown]
